FAERS Safety Report 9672121 (Version 2)
Quarter: 2013Q4

REPORT INFORMATION
  Report Type: Spontaneous
  Country: US (occurrence: US)
  Receive Date: 20131106
  Receipt Date: 20131205
  Transmission Date: 20140711
  Serious: Yes (Other)
  Sender: FDA-Public Use
  Company Number: US-JNJFOC-20131018237

PATIENT
  Age: 71 Year
  Sex: Female
  Weight: 61.69 kg

DRUGS (11)
  1. INVOKANA [Suspect]
     Indication: DIABETES MELLITUS
     Route: 048
     Dates: start: 20130903, end: 20131020
  2. FISH OIL [Concomitant]
  3. MULTIVITAMINS [Concomitant]
  4. VITAMIN D [Concomitant]
  5. DIOVAN [Concomitant]
     Indication: HYPERTENSION
  6. JANUVIA [Concomitant]
     Indication: DIABETES MELLITUS
  7. AMBIEN CR [Concomitant]
     Indication: INSOMNIA
  8. PLAVIX [Concomitant]
     Indication: TRANSIENT ISCHAEMIC ATTACK
  9. METFORMIN [Concomitant]
     Indication: DIABETES MELLITUS
  10. CYMBALTA [Concomitant]
     Indication: OBSESSIVE-COMPULSIVE DISORDER
  11. CYMBALTA [Concomitant]
     Indication: DEPRESSION

REACTIONS (4)
  - Polyarthritis [Recovering/Resolving]
  - Dehydration [Unknown]
  - Acute prerenal failure [Unknown]
  - Pain [Unknown]
